FAERS Safety Report 8121644-X (Version None)
Quarter: 2012Q1

REPORT INFORMATION
  Report Type: 
  Country: None (occurrence: None)
  Receive Date: 20120208
  Receipt Date: 20120208
  Transmission Date: 20120608
  Serious: No
  Sender: FDA-Public Use
  Company Number: None

PATIENT
  Age: 42 Year
  Sex: Male
  Weight: 68.03 kg

DRUGS (2)
  1. HYDROCHLOROQUINE [Concomitant]
     Indication: PSORIASIS
     Dosage: 400 MG
     Route: 048
     Dates: start: 20111212, end: 20120207
  2. ENBREL [Suspect]
     Indication: PSORIATIC ARTHROPATHY
     Dosage: 50.0 MG
     Route: 058
     Dates: start: 20111001, end: 20120201

REACTIONS (2)
  - ANAEMIA [None]
  - CONTUSION [None]
